FAERS Safety Report 10062316 (Version 1)
Quarter: 2014Q2

REPORT INFORMATION
  Report Type: Spontaneous
  Country: US (occurrence: US)
  Receive Date: 20140407
  Receipt Date: 20140407
  Transmission Date: 20141212
  Serious: Yes (Hospitalization)
  Sender: FDA-Public Use
  Company Number: US-GLAXOSMITHKLINE-A1058884A

PATIENT
  Age: 27 Year
  Sex: Female
  Weight: 50 kg

DRUGS (2)
  1. BENLYSTA [Suspect]
     Indication: SYSTEMIC LUPUS ERYTHEMATOSUS
     Dosage: 10MGK VARIABLE DOSE
     Route: 042
     Dates: start: 20130701, end: 20140630
  2. OTHER MEDICATIONS [Concomitant]

REACTIONS (13)
  - Diarrhoea [Unknown]
  - Swelling face [Unknown]
  - Local swelling [Unknown]
  - Pyrexia [Unknown]
  - Erythema [Unknown]
  - Headache [Unknown]
  - Pain in extremity [Unknown]
  - Weight fluctuation [Unknown]
  - Crying [Unknown]
  - Pollakiuria [Unknown]
  - Hypersensitivity [Unknown]
  - Rash [Unknown]
  - Dyspnoea [Unknown]
